FAERS Safety Report 9095136 (Version 1)
Quarter: 2013Q1

REPORT INFORMATION
  Report Type: Report from Study
  Country: US (occurrence: US)
  Receive Date: 20130201
  Receipt Date: 20130201
  Transmission Date: 20140127
  Serious: No
  Sender: FDA-Public Use
  Company Number: US-ABBOTT-12P-163-1027757-00

PATIENT
  Age: 36 Year
  Sex: Female

DRUGS (2)
  1. HUMIRA [Suspect]
     Indication: CROHN^S DISEASE
     Dates: start: 20120929, end: 20121208
  2. CELEXA [Concomitant]
     Indication: DEPRESSION
     Dosage: 40 MG DAILY

REACTIONS (2)
  - Ear pain [Recovered/Resolved]
  - Respiratory tract infection [Recovered/Resolved]
